FAERS Safety Report 7102215 (Version 16)
Quarter: 2015Q2

REPORT INFORMATION
  Report Type: Report from Study
  Country: CA (occurrence: CA)
  Receive Date: 20090901
  Receipt Date: 20150401
  Transmission Date: 20150821
  Serious: Yes (Hospitalization, Other)
  Sender: FDA-Public Use
  Company Number: PHHY2009CA25985

PATIENT
  Age: 58 Year
  Sex: Male

DRUGS (4)
  1. SANDOSTATIN LAR DEPOT [Suspect]
     Active Substance: OCTREOTIDE ACETATE
     Indication: CARCINOID TUMOUR
     Dosage: 50 MG EVERY 4 WEEKS
     Route: 030
     Dates: start: 20020103
  2. SANDOSTATIN LAR DEPOT [Suspect]
     Active Substance: OCTREOTIDE ACETATE
     Dosage: 50 MG EVERY 4 WEEKS
     Route: 030
  3. SANDOSTATIN LAR DEPOT [Suspect]
     Active Substance: OCTREOTIDE ACETATE
     Dosage: 60 MG EVERY 4 WEEKS
     Route: 030
  4. SANDOSTATIN LAR DEPOT [Suspect]
     Active Substance: OCTREOTIDE ACETATE
     Dosage: 30 MG, EVERY 4 WEEKS
     Route: 030

REACTIONS (26)
  - Blood pressure increased [Unknown]
  - Diarrhoea [Unknown]
  - Abdominal pain [Unknown]
  - Flank pain [Unknown]
  - Upper extremity mass [Unknown]
  - Heart rate decreased [Unknown]
  - Anxiety [Unknown]
  - Anorectal discomfort [Unknown]
  - Hypophagia [Unknown]
  - Pain [Unknown]
  - Neck pain [Unknown]
  - Fatigue [Unknown]
  - Fistula [Unknown]
  - Renal pain [Unknown]
  - Renal failure [Unknown]
  - Renal impairment [Unknown]
  - Pain in extremity [Unknown]
  - Skin fissures [Unknown]
  - Nephrolithiasis [Not Recovered/Not Resolved]
  - Dizziness [Unknown]
  - Injection site pain [Unknown]
  - Cerebrovascular accident [Unknown]
  - Migraine [Unknown]
  - Headache [Unknown]
  - Nausea [Unknown]
  - Mucous stools [Unknown]

NARRATIVE: CASE EVENT DATE: 20100627
